FAERS Safety Report 6764315-4 (Version None)
Quarter: 2010Q2

REPORT INFORMATION
  Report Type: 
  Country: None (occurrence: None)
  Receive Date: 20100610
  Receipt Date: 20100601
  Transmission Date: 20101027
  Serious: Yes (Other)
  Sender: FDA-Public Use
  Company Number: US-SANOFI-AVENTIS-2010SA026742

PATIENT
  Age: 76 Year
  Sex: Male

DRUGS (9)
  1. MULTAQ [Suspect]
     Indication: ATRIAL FIBRILLATION
     Route: 048
     Dates: start: 20100101, end: 20100501
  2. MULTAQ [Suspect]
     Indication: CARDIAC ABLATION
     Route: 048
     Dates: start: 20100101, end: 20100501
  3. MULTAQ [Suspect]
     Route: 048
  4. MULTAQ [Suspect]
     Route: 048
  5. COUMADIN [Concomitant]
     Indication: ATRIAL FIBRILLATION
  6. DILTIAZEM [Concomitant]
     Indication: ATRIAL FIBRILLATION
     Dates: start: 20100301, end: 20100511
  7. DILTIAZEM [Concomitant]
     Indication: HEART RATE
     Dates: start: 20100301, end: 20100511
  8. LIPITOR [Concomitant]
  9. ZYRTEC [Concomitant]

REACTIONS (3)
  - ATRIAL FIBRILLATION [None]
  - BLOOD THYROID STIMULATING HORMONE DECREASED [None]
  - HYPERTHYROIDISM [None]
